FAERS Safety Report 6741141-3 (Version None)
Quarter: 2010Q2

REPORT INFORMATION
  Report Type: 
  Country: None (occurrence: None)
  Receive Date: 20100526
  Receipt Date: 20100519
  Transmission Date: 20101027
  Serious: Yes (Other)
  Sender: FDA-Public Use
  Company Number: JP-BAYER-200914794BYL

PATIENT
  Age: 62 Year
  Sex: Male
  Weight: 45 kg

DRUGS (5)
  1. NEXAVAR [Suspect]
     Indication: HEPATIC NEOPLASM MALIGNANT
     Dosage: TOTAL DAILY DOSE: 800 MG  UNIT DOSE: 200 MG
     Route: 048
     Dates: start: 20090615, end: 20090623
  2. URSO 250 [Concomitant]
     Route: 048
  3. GOODMIN [Concomitant]
     Route: 048
  4. LOXOPROFEN [Concomitant]
     Route: 048
  5. MUCOSTA [Concomitant]
     Route: 048

REACTIONS (7)
  - CHEILITIS [None]
  - DYSPNOEA [None]
  - GENITAL EROSION [None]
  - LIP DISORDER [None]
  - ORAL DISORDER [None]
  - PALMAR-PLANTAR ERYTHRODYSAESTHESIA SYNDROME [None]
  - PALPITATIONS [None]
